FAERS Safety Report 22331194 (Version 2)
Quarter: 2023Q2

REPORT INFORMATION
  Report Type: Report from Study
  Country: CO (occurrence: None)
  Receive Date: 20230517
  Receipt Date: 20230617
  Transmission Date: 20230722
  Serious: Yes (Hospitalization)
  Sender: FDA-Public Use
  Company Number: CO-ROCHE-3348015

PATIENT
  Age: 34 Year
  Sex: Female
  Weight: 41.6 kg

DRUGS (7)
  1. OBINUTUZUMAB [Suspect]
     Active Substance: OBINUTUZUMAB
     Indication: Lupus nephritis
     Dosage: ON 09/NOV/2022, MOST RECENT DOSE OF STUDY DRUG PRIOR TO AE/SAE
     Route: 042
     Dates: start: 20210428
  2. MYCOPHENOLATE MOFETIL [Suspect]
     Active Substance: MYCOPHENOLATE MOFETIL
     Indication: Lupus nephritis
     Dosage: ON 16/MAR/2023, MOST RECENT DOSE OF STUDY DRUG PRIOR TO AE/SAE
     Route: 048
     Dates: start: 20210429
  3. CHLOROQUINE [Concomitant]
     Active Substance: CHLOROQUINE
     Route: 048
     Dates: start: 2013
  4. CALCIUM [Concomitant]
     Active Substance: CALCIUM
     Route: 048
     Dates: start: 2013
  5. OMEPRAZOLE [Concomitant]
     Active Substance: OMEPRAZOLE
     Route: 048
     Dates: start: 2013
  6. ENALAPRIL [Concomitant]
     Active Substance: ENALAPRIL
     Route: 048
     Dates: start: 20210315
  7. PREDNISONE [Concomitant]
     Active Substance: PREDNISONE
     Indication: Lupus nephritis
     Route: 048
     Dates: start: 20211014

REACTIONS (1)
  - Pneumonia bacterial [Recovered/Resolved]

NARRATIVE: CASE EVENT DATE: 20230317
